FAERS Safety Report 5476893-6 (Version None)
Quarter: 2007Q4

REPORT INFORMATION
  Report Type: 
  Country: None (occurrence: None)
  Receive Date: 20071004
  Receipt Date: 20070924
  Transmission Date: 20080405
  Serious: Yes (Hospitalization)
  Sender: FDA-Public Use
  Company Number: FR-AVENTIS-200713017FR

PATIENT
  Age: 41 Year
  Sex: Female

DRUGS (2)
  1. CLAFORAN [Suspect]
     Route: 042
     Dates: start: 20070806, end: 20070813
  2. PERFALGAN [Suspect]
     Route: 042
     Dates: start: 20070731, end: 20070813

REACTIONS (3)
  - BLOOD AMYLASE INCREASED [None]
  - LIPASE INCREASED [None]
  - TRANSAMINASES INCREASED [None]
